FAERS Safety Report 25187769 (Version 1)
Quarter: 2025Q2

REPORT INFORMATION
  Report Type: Spontaneous
  Country: CN (occurrence: CN)
  Receive Date: 20250411
  Receipt Date: 20250411
  Transmission Date: 20250716
  Serious: Yes (Disabling)
  Sender: ACCORD
  Company Number: None

PATIENT
  Age: 64 Year
  Sex: Female
  Weight: 65 kg

DRUGS (2)
  1. TRASTUZUMAB [Suspect]
     Active Substance: TRASTUZUMAB
     Indication: Invasive breast carcinoma
     Dosage: 500 MILLIGRAM, QD, 60 MILLIGRAM, IV DRIP
     Route: 042
     Dates: start: 20250310, end: 20250310
  2. PERTUZUMAB [Suspect]
     Active Substance: PERTUZUMAB
     Indication: Invasive breast carcinoma
     Dosage: 840 MILLIGRAM, QD,  IV DRIP
     Route: 042
     Dates: start: 20250310, end: 20250310

REACTIONS (2)
  - Myelosuppression [Recovered/Resolved]
  - Alanine aminotransferase increased [Unknown]

NARRATIVE: CASE EVENT DATE: 20250318
